FAERS Safety Report 7806654-1 (Version None)
Quarter: 2011Q4

REPORT INFORMATION
  Report Type: 
  Country: None (occurrence: None)
  Receive Date: 20111005
  Receipt Date: 20110928
  Transmission Date: 20120403
  Serious: Yes (Hospitalization, Other)
  Sender: FDA-Public Use
  Company Number: 2009-194884-NL

PATIENT
  Age: 19 Year
  Sex: Female
  Weight: 61.2356 kg

DRUGS (2)
  1. NUVARING [Suspect]
     Indication: MENSTRUATION IRREGULAR
     Dosage: 1 DF;
     Dates: start: 20070903, end: 20080929
  2. NUVARING [Suspect]
     Indication: CONTRACEPTION
     Dosage: 1 DF;
     Dates: start: 20070903, end: 20080929

REACTIONS (8)
  - PRURITUS [None]
  - INTERNATIONAL NORMALISED RATIO INCREASED [None]
  - PULMONARY EMBOLISM [None]
  - SWELLING [None]
  - MUSCLE SPASMS [None]
  - PROTEIN S DEFICIENCY [None]
  - PAIN [None]
  - HYPERCOAGULATION [None]
